FAERS Safety Report 15005362 (Version 1)
Quarter: 2018Q2

REPORT INFORMATION
  Report Type: Spontaneous
  Country: PL (occurrence: PL)
  Receive Date: 20180613
  Receipt Date: 20180613
  Transmission Date: 20180711
  Serious: Yes (Hospitalization)
  Sender: FDA-Public Use
  Company Number: PL-GLAXOSMITHKLINE-PL2018008193

PATIENT
  Age: 37 Year
  Sex: Female

DRUGS (16)
  1. CEFUROXIME. [Suspect]
     Active Substance: CEFUROXIME
     Indication: CYSTITIS
     Dosage: UNK
     Route: 065
  2. HEPARIN SODIUM. [Suspect]
     Active Substance: HEPARIN SODIUM
     Indication: PRODUCT USED FOR UNKNOWN INDICATION
     Dosage: UNK
     Route: 065
  3. TORASEMIDE [Suspect]
     Active Substance: TORSEMIDE
     Indication: HYPERTENSION
     Dosage: 2.5 MG, QD
     Route: 065
  4. ACETYLSALICYLIC ACID [Suspect]
     Active Substance: ASPIRIN
     Indication: PROPHYLAXIS
     Dosage: 75 MG, QD
     Route: 048
  5. SPIRAMYCIN [Suspect]
     Active Substance: SPIRAMYCIN
     Indication: TOXOPLASMOSIS
     Dosage: UNK
     Route: 065
  6. IRON [Suspect]
     Active Substance: IRON
     Dosage: UNK MG, UNK
     Route: 048
  7. SPIRAMYCIN [Suspect]
     Active Substance: SPIRAMYCIN
     Indication: CYSTITIS
  8. ALFACALCIDOL [Suspect]
     Active Substance: ALFACALCIDOL
     Indication: HYPERPARATHYROIDISM
     Dosage: 0.25 UG, QD
     Route: 065
  9. IRON [Suspect]
     Active Substance: IRON
     Dosage: 100 MG, QW
     Route: 048
  10. SIMVASTATIN. [Suspect]
     Active Substance: SIMVASTATIN
     Indication: HYPERCHOLESTEROLAEMIA
     Dosage: 20 MG, UNK
     Route: 065
  11. FOLIC ACID. [Suspect]
     Active Substance: FOLIC ACID
     Indication: PRODUCT USED FOR UNKNOWN INDICATION
     Dosage: 15 MG, QD
     Route: 048
  12. LEVOTHYROXINE SODIUM. [Suspect]
     Active Substance: LEVOTHYROXINE SODIUM
     Indication: HYPOTHYROIDISM
     Dosage: 25 ?G, QD
     Route: 065
     Dates: start: 2015
  13. METYLDOPA [Suspect]
     Active Substance: METHYLDOPA
     Indication: HYPERTENSION
     Dosage: 3 X 1 TABLET
     Route: 065
  14. ASCORBIC ACID. [Suspect]
     Active Substance: ASCORBIC ACID
     Indication: PRODUCT USED FOR UNKNOWN INDICATION
     Dosage: UNK
     Route: 065
  15. EPOETIN BETA [Suspect]
     Active Substance: ERYTHROPOIETIN
     Indication: PRODUCT USED FOR UNKNOWN INDICATION
     Dosage: 2000 IU, UNK
     Route: 058
  16. IRON [Suspect]
     Active Substance: IRON
     Indication: PRODUCT USED FOR UNKNOWN INDICATION
     Dosage: 100 MG,
     Route: 042

REACTIONS (11)
  - Haematocrit decreased [Unknown]
  - Haemoglobin decreased [Unknown]
  - Toxoplasmosis [Unknown]
  - Oedema peripheral [Unknown]
  - Blood albumin decreased [Unknown]
  - Contraindicated product administered [Unknown]
  - Hypothyroidism [Unknown]
  - Premature rupture of membranes [Unknown]
  - Cystitis [Unknown]
  - Maternal exposure during pregnancy [Unknown]
  - Off label use [Unknown]

NARRATIVE: CASE EVENT DATE: 201505
